FAERS Safety Report 7898689-8 (Version None)
Quarter: 2011Q4

REPORT INFORMATION
  Report Type: 
  Country: None (occurrence: None)
  Receive Date: 20111107
  Receipt Date: 20111028
  Transmission Date: 20120403
  Serious: Yes (Hospitalization)
  Sender: FDA-Public Use
  Company Number: US-ASTRAZENECA-2011SE35569

PATIENT
  Age: 50 Year
  Sex: Female
  Weight: 95.7 kg

DRUGS (4)
  1. SYMBICORT [Suspect]
     Route: 055
  2. COMBIVENT [Concomitant]
  3. OMEPRAZOLE [Suspect]
     Route: 048
  4. AVELOX [Concomitant]
     Dosage: FOR 8 MORE DAYS

REACTIONS (9)
  - LOBAR PNEUMONIA [None]
  - WHEEZING [None]
  - HYPOXIA [None]
  - LEUKOCYTOSIS [None]
  - PNEUMONIA [None]
  - COUGH [None]
  - CHRONIC OBSTRUCTIVE PULMONARY DISEASE [None]
  - DYSPNOEA [None]
  - FEELING ABNORMAL [None]
